FAERS Safety Report 5697612-4 (Version None)
Quarter: 2008Q2

REPORT INFORMATION
  Report Type: 
  Country: None (occurrence: None)
  Receive Date: 20080408
  Receipt Date: 20080331
  Transmission Date: 20081010
  Serious: Yes (Other)
  Sender: FDA-Public Use
  Company Number: US-ASTRAZENECA-2008UW06375

PATIENT
  Age: 84 Year
  Sex: Female

DRUGS (1)
  1. ARIMIDEX [Suspect]
     Indication: BREAST CANCER
     Route: 048
     Dates: start: 20070101

REACTIONS (4)
  - ALOPECIA [None]
  - EPISTAXIS [None]
  - RHINORRHOEA [None]
  - THROMBOSIS [None]
